FAERS Safety Report 13726273 (Version 1)
Quarter: 2017Q3

REPORT INFORMATION
  Report Type: Spontaneous
  Country: IL (occurrence: IL)
  Receive Date: 20170706
  Receipt Date: 20170706
  Transmission Date: 20171127
  Serious: Yes (Other)
  Sender: FDA-Public Use
  Company Number: IL-BAYER-2017-126998

PATIENT
  Sex: Male

DRUGS (1)
  1. XOFIGO [Suspect]
     Active Substance: RADIUM RA-223 DICHLORIDE
     Dosage: UNK
     Dates: start: 20170426, end: 2017

REACTIONS (4)
  - Prostatic specific antigen increased [None]
  - Asthenia [None]
  - Prostate cancer [None]
  - Fatigue [None]

NARRATIVE: CASE EVENT DATE: 2017
